FAERS Safety Report 14256645 (Version 1)
Quarter: 2017Q4

REPORT INFORMATION
  Report Type: Spontaneous
  Country: CN (occurrence: CN)
  Receive Date: 20171206
  Receipt Date: 20171206
  Transmission Date: 20180321
  Serious: Yes (Other)
  Sender: FDA-Public Use
  Company Number: CN-PFIZER INC-2017522734

PATIENT
  Age: 43 Year
  Sex: Male
  Weight: 60 kg

DRUGS (4)
  1. RAPAMUNE [Suspect]
     Active Substance: SIROLIMUS
     Indication: BONE MARROW TRANSPLANT REJECTION
     Dosage: 2 MG, 1X/DAY
     Route: 048
     Dates: start: 20170123, end: 20170824
  2. CELLCEPT [Concomitant]
     Active Substance: MYCOPHENOLATE MOFETIL\MYCOPHENOLATE MOFETIL HYDROCHLORIDE
     Indication: BONE MARROW TRANSPLANT REJECTION
     Dosage: 250 MG, 2X/DAY
     Route: 048
     Dates: start: 20170828, end: 20171020
  3. MEDROL [Concomitant]
     Active Substance: METHYLPREDNISOLONE
     Indication: BONE MARROW TRANSPLANT REJECTION
     Dosage: 12 MG, ALTERNATE DAY
     Route: 048
     Dates: start: 20170828, end: 20171005
  4. RAPAMUNE [Suspect]
     Active Substance: SIROLIMUS
     Dosage: 1 MG, 1X/DAY
     Route: 048
     Dates: start: 20170828, end: 20171003

REACTIONS (3)
  - Pyrexia [Unknown]
  - Dyspnoea [Unknown]
  - Blood pressure increased [Recovering/Resolving]

NARRATIVE: CASE EVENT DATE: 20170930
